FAERS Safety Report 4351402-3 (Version None)
Quarter: 2004Q2

REPORT INFORMATION
  Report Type: 
  Country: None (occurrence: None)
  Receive Date: 20040430
  Receipt Date: 20040430
  Transmission Date: 20050107
  Serious: No
  Sender: FDA-Public Use
  Company Number: None

PATIENT
  Age: 87 Year
  Sex: Female
  Weight: 57 kg

DRUGS (3)
  1. CETACAINE CETYLITE INDUSTRIES [Suspect]
     Indication: ANAESTHESIA
     Dates: start: 20040210, end: 20040210
  2. DILTIAZEM [Concomitant]
  3. KCL TAB [Concomitant]

REACTIONS (2)
  - ACQUIRED METHAEMOGLOBINAEMIA [None]
  - HYPOXIA [None]
